FAERS Safety Report 9128206 (Version 1)
Quarter: 2013Q1

REPORT INFORMATION
  Report Type: Spontaneous
  Country: IT (occurrence: IT)
  Receive Date: 20130228
  Receipt Date: 20130228
  Transmission Date: 20140127
  Serious: Yes (Other)
  Sender: FDA-Public Use
  Company Number: IT-JNJFOC-20130215940

PATIENT
  Age: 75 Year
  Sex: Female

DRUGS (4)
  1. INFLIXIMAB, RECOMBINANT [Suspect]
     Indication: PSORIATIC ARTHROPATHY
     Dosage: SECOND INFUSION??INDUCTION DOSES AT 0, 2 AND 6 WEEKS
     Route: 042
  2. HYDROCHLOROTHIAZIDE [Concomitant]
     Route: 065
  3. METFORMIN [Concomitant]
     Route: 065
  4. ANTIHISTAMINES [Concomitant]
     Indication: PREMEDICATION
     Route: 065

REACTIONS (2)
  - Panic attack [Recovered/Resolved]
  - Infusion related reaction [Recovered/Resolved]
